FAERS Safety Report 22838020 (Version 2)
Quarter: 2024Q1

REPORT INFORMATION
  Report Type: Spontaneous
  Country: GB (occurrence: GB)
  Receive Date: 20230818
  Receipt Date: 20240223
  Transmission Date: 20240409
  Serious: Yes (Other)
  Sender: FDA-Public Use
  Company Number: GB-002147023-NVSC2022GB177182

PATIENT
  Sex: Female

DRUGS (4)
  1. TAFINLAR [Suspect]
     Active Substance: DABRAFENIB MESYLATE
     Indication: Paternal exposure during pregnancy
     Dosage: EXPOSURE VIA PARTNER: 150 MG BID DATED 12 FEB 2017
     Route: 050
     Dates: start: 20170212
  2. TAFINLAR [Suspect]
     Active Substance: DABRAFENIB MESYLATE
     Dosage: EXPOSURE VIA PARTNER: UNK (STARTED IN 2018)
     Route: 050
     Dates: start: 2018
  3. MEKINIST [Suspect]
     Active Substance: TRAMETINIB DIMETHYL SULFOXIDE
     Indication: Paternal exposure during pregnancy
     Dosage: EXPOSURE VIA PARTNER: 2 MG QD, DATED 12 FEB 2017
     Route: 050
     Dates: start: 20170212
  4. MEKINIST [Suspect]
     Active Substance: TRAMETINIB DIMETHYL SULFOXIDE
     Dosage: EXPOSURE VIA PARTNER: UNK (STARTED IN 2018)
     Route: 050
     Dates: start: 2018

REACTIONS (3)
  - Pregnancy with contraceptive device [Unknown]
  - Exposure via partner [Unknown]
  - Normal newborn [Unknown]

NARRATIVE: CASE EVENT DATE: 20220802
